FAERS Safety Report 4632656-2 (Version None)
Quarter: 2005Q2

REPORT INFORMATION
  Report Type: 
  Country: None (occurrence: None)
  Receive Date: 20050331
  Receipt Date: 20040922
  Transmission Date: 20051028
  Serious: Yes (Other)
  Sender: FDA-Public Use
  Company Number: 200414585BCC

PATIENT
  Age: 67 Year
  Sex: Female
  Weight: 63.5036 kg

DRUGS (6)
  1. ALEVE [Suspect]
     Indication: BACK PAIN
     Dosage: 220-440 MG
     Dates: start: 20040901
  2. SYNTHROID [Concomitant]
  3. CRESTOR [Concomitant]
  4. LOTREL [Concomitant]
  5. QUININE SULFATE [Concomitant]
  6. NEXIUM [Concomitant]

REACTIONS (4)
  - DYSPHAGIA [None]
  - EROSIVE OESOPHAGITIS [None]
  - GASTRIC ULCER [None]
  - GASTRITIS EROSIVE [None]
